FAERS Safety Report 8217372-2 (Version None)
Quarter: 2012Q1

REPORT INFORMATION
  Report Type: 
  Country: None (occurrence: None)
  Receive Date: 20120313
  Receipt Date: 20120229
  Transmission Date: 20120608
  Serious: Yes (Hospitalization)
  Sender: FDA-Public Use
  Company Number: 2012MA003047

PATIENT
  Age: 75 Year
  Sex: Male

DRUGS (12)
  1. NAPROXEN [Suspect]
     Indication: PAIN
     Dosage: 500 MG;BID;PO
     Route: 048
     Dates: start: 20120213, end: 20120216
  2. AMLODIPINE [Concomitant]
  3. IRBESARTAN [Concomitant]
  4. SIMVASTATIN [Concomitant]
  5. ALLOPURINOL [Concomitant]
  6. MST CONTINIOUS [Concomitant]
  7. ORAMORPH SR [Concomitant]
  8. DOXAZOSIN MESYLATE [Concomitant]
  9. DIAZEPAM [Concomitant]
  10. CODEINE SULFATE [Concomitant]
  11. METFORMIN HCL [Concomitant]
  12. ACETAMINOPHEN [Concomitant]

REACTIONS (1)
  - RENAL FAILURE ACUTE [None]
